FAERS Safety Report 25658414 (Version 2)
Quarter: 2025Q4

REPORT INFORMATION
  Report Type: Spontaneous
  Country: US (occurrence: US)
  Receive Date: 20250808
  Receipt Date: 20251016
  Transmission Date: 20260118
  Serious: No
  Sender: CIPLA
  Company Number: US-CIPLA LTD.-2025US09614

PATIENT

DRUGS (1)
  1. ALBUTEROL [Suspect]
     Active Substance: ALBUTEROL
     Indication: Cough
     Dosage: 180 MICROGRAM, QID (2 PUFFS 4 TIMES A DAY BY MOUTH)
     Dates: start: 20250721, end: 2025

REACTIONS (3)
  - Drug dose omission by device [Unknown]
  - Device delivery system issue [Unknown]
  - Device breakage [Unknown]

NARRATIVE: CASE EVENT DATE: 20250101
